FAERS Safety Report 14982689 (Version 1)
Quarter: 2018Q2

REPORT INFORMATION
  Report Type: Spontaneous
  Country: AU (occurrence: AU)
  Receive Date: 20180607
  Receipt Date: 20180607
  Transmission Date: 20180711
  Serious: Yes (Hospitalization, Other)
  Sender: FDA-Public Use
  Company Number: AU-ABBVIE-18S-163-2378462-00

PATIENT
  Age: 44 Year
  Sex: Female

DRUGS (1)
  1. CREON [Suspect]
     Active Substance: PANCRELIPASE AMYLASE\PANCRELIPASE LIPASE\PANCRELIPASE PROTEASE
     Indication: PRODUCT USED FOR UNKNOWN INDICATION
     Dosage: SOAK FOR 20MIN IN 1SORDID 840MG CAPSULE, 10ML WATER OR 1TSP BICARB SODA IN 50ML WATER
     Route: 048

REACTIONS (9)
  - Intestinal ischaemia [Unknown]
  - Internal hernia [Unknown]
  - Intestinal transit time increased [Unknown]
  - Diarrhoea [Recovering/Resolving]
  - Weight decreased [Recovered/Resolved]
  - Gastric bypass [Unknown]
  - Medication residue present [Unknown]
  - Exposure during pregnancy [Unknown]
  - Live birth [Unknown]
